FAERS Safety Report 23735477 (Version 1)
Quarter: 2024Q2

REPORT INFORMATION
  Report Type: Report from Study
  Country: US (occurrence: US)
  Receive Date: 20240412
  Receipt Date: 20240412
  Transmission Date: 20240715
  Serious: Yes (Hospitalization)
  Sender: FDA-Public Use
  Company Number: US-TEVA-VS-3178707

PATIENT
  Age: 16 Year
  Sex: Male
  Weight: 63.6 kg

DRUGS (5)
  1. VINCRISTINE [Suspect]
     Active Substance: VINCRISTINE
     Indication: Leukaemia
     Dosage: 2 MILLIGRAM, ONCE
     Route: 042
     Dates: start: 20220504
  2. METHOTREXATE [Suspect]
     Active Substance: METHOTREXATE
     Indication: Leukaemia
     Dosage: ONCE
     Route: 048
     Dates: start: 20220606
  3. MERCAPTOPURINE [Suspect]
     Active Substance: MERCAPTOPURINE
     Indication: Leukaemia
     Route: 048
     Dates: start: 20220616, end: 20230715
  4. MERCAPTOPURINE [Suspect]
     Active Substance: MERCAPTOPURINE
     Indication: Leukaemia
     Dosage: 125 UNK, QD;
     Route: 048
     Dates: start: 20230803
  5. PREDNISONE [Suspect]
     Active Substance: PREDNISONE
     Indication: Leukaemia
     Dosage: ONCE
     Route: 048
     Dates: start: 20220616

REACTIONS (6)
  - Anaemia [Recovered/Resolved]
  - Neutropenia [Recovered/Resolved]
  - Perineal pain [Recovered/Resolved]
  - Thrombocytopenia [Recovered/Resolved]
  - Febrile neutropenia [Recovered/Resolved]
  - Anorectal infection [Recovered/Resolved]

NARRATIVE: CASE EVENT DATE: 20230714
